FAERS Safety Report 7077438-X (Version None)
Quarter: 2010Q4

REPORT INFORMATION
  Report Type: 
  Country: None (occurrence: None)
  Receive Date: 20101101
  Receipt Date: 20101021
  Transmission Date: 20110411
  Serious: Yes (Hospitalization, Disabling, Other)
  Sender: FDA-Public Use
  Company Number: US-MERCK-1007USA02362

PATIENT
  Sex: Female

DRUGS (1)
  1. FOSAMAX [Suspect]
     Indication: OSTEOPENIA
     Route: 048

REACTIONS (15)
  - ABSCESS ORAL [None]
  - ANXIETY [None]
  - ARTERIAL OCCLUSIVE DISEASE [None]
  - BACK INJURY [None]
  - DENTAL CARIES [None]
  - LIMB INJURY [None]
  - ORAL HERPES [None]
  - OSTEONECROSIS OF JAW [None]
  - OSTEOPOROSIS [None]
  - ROAD TRAFFIC ACCIDENT [None]
  - SPINAL FUSION SURGERY [None]
  - TEMPOROMANDIBULAR JOINT SYNDROME [None]
  - TOOTH DISORDER [None]
  - TOOTH LOSS [None]
  - TRISMUS [None]
